FAERS Safety Report 5206082-1 (Version None)
Quarter: 2007Q1

REPORT INFORMATION
  Report Type: 
  Country: None (occurrence: None)
  Receive Date: 20070111
  Receipt Date: 20070102
  Transmission Date: 20070707
  Serious: Yes (Other)
  Sender: FDA-Public Use
  Company Number: US-ELI_LILLY_AND_COMPANY-US200701001182

PATIENT
  Age: 51 Year
  Sex: Female

DRUGS (8)
  1. XIGRIS [Suspect]
     Indication: SEPSIS
     Dosage: 24 UNK, OTHER
     Route: 042
  2. CIPROFLOXACIN [Concomitant]
     Indication: INFECTION
  3. LEVOFLOXACIN [Concomitant]
  4. IMIPENEM [Concomitant]
     Indication: SEPSIS
  5. VANCOMYCIN HYDROCHLORIDE [Concomitant]
     Indication: SEPSIS
  6. CLINDAMYCIN [Concomitant]
     Indication: SEPSIS
  7. DIFLUCAN [Concomitant]
     Indication: SEPSIS
  8. FLAGYL [Concomitant]
     Indication: SEPSIS

REACTIONS (3)
  - ACTIVATED PARTIAL THROMBOPLASTIN TIME PROLONGED [None]
  - INTERNATIONAL NORMALISED RATIO INCREASED [None]
  - PLATELET COUNT DECREASED [None]
